FAERS Safety Report 10633587 (Version 1)
Quarter: 2014Q4

REPORT INFORMATION
  Report Type: Spontaneous
  Country: US (occurrence: None)
  Receive Date: 20141203
  Receipt Date: 20141203
  Transmission Date: 20150529
  Serious: Yes (Other)
  Sender: FDA-Public Use
  Company Number: 2014110059

PATIENT
  Age: 65 Year
  Sex: Female

DRUGS (21)
  1. DEMADEX (TORSEMIDE) [Concomitant]
  2. ALDACTONE [Concomitant]
     Active Substance: SPIRONOLACTONE
  3. LANOXIN [Concomitant]
     Active Substance: DIGOXIN
  4. TORSEMIDE (TORSEMIDE) UNKNOWN [Suspect]
     Active Substance: TORSEMIDE
     Route: 048
  5. VITAMIN D (ERGOCALCIFEROL) [Concomitant]
     Active Substance: ERGOCALCIFEROL
  6. LORTAB [Concomitant]
     Active Substance: ACETAMINOPHEN\HYDROCODONE BITARTRATE
  7. PREDNISONE. [Concomitant]
     Active Substance: PREDNISONE
  8. COREG [Concomitant]
     Active Substance: CARVEDILOL
  9. COUMADIN (WARFAIN SODIUM) [Concomitant]
  10. REMODULIN [Suspect]
     Active Substance: TREPROSTINIL
     Indication: PULMONARY ARTERIAL HYPERTENSION
     Route: 041
  11. REVATIO (SILDENAFIL CITRATE) [Concomitant]
  12. FEMARA [Concomitant]
     Active Substance: LETROZOLE
  13. PLAQUENIL (HYDROXYCHLOROQUINE PHOSPHATE) [Concomitant]
     Active Substance: HYDROXYCHLOROQUINE SULFATE
  14. PRAVACHOL (PRAVASTATIN SODIUM) [Concomitant]
  15. LUMIGAN (BIMATOPROST) [Concomitant]
  16. COLCHICINE. [Concomitant]
     Active Substance: COLCHICINE
  17. FERROUS SULFATE [Concomitant]
     Active Substance: FERROUS SULFATE\FERROUS SULFATE, DRIED
  18. PLAVIX (CLOPIDOGREL BISULFATE) [Concomitant]
  19. LANTUS [Concomitant]
     Active Substance: INSULIN GLARGINE
  20. POTASSIUM CHLORIDE. [Concomitant]
     Active Substance: POTASSIUM CHLORIDE
  21. ADCIRCA [Concomitant]
     Active Substance: TADALAFIL

REACTIONS (1)
  - Chronic kidney disease [None]

NARRATIVE: CASE EVENT DATE: 20141111
